FAERS Safety Report 22176029 (Version 1)
Quarter: 2023Q2

REPORT INFORMATION
  Report Type: Spontaneous
  Country: AU (occurrence: None)
  Receive Date: 20230405
  Receipt Date: 20230405
  Transmission Date: 20230722
  Serious: Yes (Other)
  Sender: FDA-Public Use
  Company Number: 2023A072926

PATIENT
  Sex: Male

DRUGS (8)
  1. ACALABRUTINIB [Suspect]
     Active Substance: ACALABRUTINIB
     Route: 048
  2. BENDAMUSTINE HYDROCHLORIDE [Suspect]
     Active Substance: BENDAMUSTINE HYDROCHLORIDE
  3. CISPLATIN [Suspect]
     Active Substance: CISPLATIN
  4. CYTARABINE [Suspect]
     Active Substance: CYTARABINE
  5. DEXAMETHASONE [Suspect]
     Active Substance: DEXAMETHASONE
  6. IBRUTINIB [Suspect]
     Active Substance: IBRUTINIB
  7. OXALIPLATIN [Suspect]
     Active Substance: OXALIPLATIN
  8. RITUXIMAB [Suspect]
     Active Substance: RITUXIMAB

REACTIONS (3)
  - Bone marrow failure [Unknown]
  - Off label use [Unknown]
  - Treatment failure [Unknown]
